FAERS Safety Report 5131841-3 (Version None)
Quarter: 2006Q4

REPORT INFORMATION
  Report Type: 
  Country: None (occurrence: None)
  Receive Date: 20061016
  Receipt Date: 20061004
  Transmission Date: 20070319
  Serious: Yes (Other)
  Sender: FDA-Public Use
  Company Number: 2006123463

PATIENT
  Sex: Female

DRUGS (2)
  1. LIPITOR [Suspect]
     Indication: BLOOD CHOLESTEROL
     Dosage: 10 MG (10 MG, 1 IN 1 D)
     Dates: start: 20060609
  2. HYDROCHLOROTHIAZIDE [Concomitant]

REACTIONS (7)
  - ARTHRALGIA [None]
  - DEPRESSION [None]
  - DIARRHOEA [None]
  - GAIT DISTURBANCE [None]
  - NAUSEA [None]
  - PAIN [None]
  - VOMITING [None]
